FAERS Safety Report 4757122-5 (Version None)
Quarter: 2005Q3

REPORT INFORMATION
  Report Type: 
  Country: None (occurrence: None)
  Receive Date: 20050829
  Receipt Date: 20050814
  Transmission Date: 20060218
  Serious: Yes (Hospitalization)
  Sender: FDA-Public Use
  Company Number: 2005115972

PATIENT
  Age: 53 Year
  Sex: Female
  Weight: 107.9561 kg

DRUGS (8)
  1. ZYVOX [Suspect]
     Indication: OSTEOMYELITIS
     Dosage: 1200 MG (600 MG, 2 IN 1 D), ORAL
     Route: 048
     Dates: start: 20050808
  2. ZOLOFT [Suspect]
     Indication: DEPRESSION
     Dates: start: 20050601
  3. HUMALOG [Concomitant]
  4. LANTUS [Concomitant]
  5. LASIX [Concomitant]
  6. ZAROXOLYN [Concomitant]
  7. TRICOR [Concomitant]
  8. METHADONE HCL [Concomitant]

REACTIONS (8)
  - CONDITION AGGRAVATED [None]
  - DRUG INEFFECTIVE [None]
  - DRUG INTERACTION [None]
  - DRY MOUTH [None]
  - DYSGEUSIA [None]
  - NAUSEA [None]
  - PAIN [None]
  - TREMOR [None]
